FAERS Safety Report 9118879 (Version 1)
Quarter: 2013Q1

REPORT INFORMATION
  Report Type: Spontaneous
  Country: US (occurrence: US)
  Receive Date: 20130226
  Receipt Date: 20130226
  Transmission Date: 20140127
  Serious: No
  Sender: FDA-Public Use
  Company Number: US-009507513-1302USA011789

PATIENT
  Age: 32 Year
  Sex: Female

DRUGS (2)
  1. IMPLANON [Suspect]
     Indication: CONTRACEPTION
     Dosage: 1 ROD EVERY 3 YEARS
     Route: 059
     Dates: start: 20101015, end: 20130214
  2. IMPLANON [Suspect]
     Dosage: 1 ROD EVERY 3 YEARS
     Route: 059
     Dates: start: 20130214

REACTIONS (2)
  - Pruritus [Unknown]
  - Device breakage [Unknown]
